FAERS Safety Report 13567906 (Version 1)
Quarter: 2017Q2

REPORT INFORMATION
  Report Type: Spontaneous
  Country: JP (occurrence: JP)
  Receive Date: 20170522
  Receipt Date: 20170522
  Transmission Date: 20170830
  Serious: Yes (Death, Hospitalization, Other)
  Sender: FDA-Public Use
  Company Number: JP-BAYER-2016-128740

PATIENT
  Age: 71 Year
  Sex: Female

DRUGS (9)
  1. STIVARGA [Suspect]
     Active Substance: REGORAFENIB
     Indication: COLORECTAL CANCER
     Dosage: 160 MG, QD (3 WEEKS AND OFF FOR 1 WEEK)
     Route: 048
     Dates: start: 20160520, end: 20160603
  2. STIVARGA [Suspect]
     Active Substance: REGORAFENIB
     Indication: COLORECTAL CANCER
     Dosage: 160 MG, QD (ON FOR 7 DAYS)
     Route: 048
     Dates: start: 20160617, end: 20160624
  3. STIVARGA [Suspect]
     Active Substance: REGORAFENIB
     Indication: COLORECTAL CANCER
     Dosage: 80 MG, QD (ON FOR 7 DAYS)
     Route: 048
     Dates: start: 20160916, end: 20160923
  4. PARIET [Concomitant]
     Active Substance: RABEPRAZOLE SODIUM
     Dosage: DAILY DOSE 10 MG
     Route: 048
     Dates: start: 20140131, end: 20160930
  5. GASMOTIN [Concomitant]
     Active Substance: MOSAPRIDE CITRATE
     Indication: PROPHYLAXIS
     Dosage: DAILY DOSE 15 MG
     Route: 048
     Dates: start: 20131220, end: 20160930
  6. MAGLAX [Concomitant]
     Active Substance: MAGNESIUM OXIDE
     Indication: CONSTIPATION PROPHYLAXIS
     Dosage: DAILY DOSE 1500 MG
     Route: 048
     Dates: start: 20131220, end: 20160930
  7. CELECOXIB. [Concomitant]
     Active Substance: CELECOXIB
     Indication: RECTAL CANCER
     Dosage: DAILY DOSE 200 MG
     Route: 048
     Dates: start: 20160826, end: 20160930
  8. STIVARGA [Suspect]
     Active Substance: REGORAFENIB
     Indication: COLORECTAL CANCER
     Dosage: 80 MG, QD (3 WEEKS AND OFF FOR 1 WEEK)
     Dates: start: 20160819, end: 20160902
  9. SLOW-K [Concomitant]
     Active Substance: POTASSIUM CHLORIDE
     Dosage: DAILY DOSE 1800 MG
     Route: 048
     Dates: start: 20160826, end: 20160930

REACTIONS (9)
  - Altered state of consciousness [Fatal]
  - Abnormal behaviour [Fatal]
  - Hyperuricaemia [Fatal]
  - Disseminated intravascular coagulation [Fatal]
  - Hepatic function abnormal [Recovered/Resolved]
  - Malaise [Fatal]
  - Face oedema [Fatal]
  - Renal impairment [Fatal]
  - Platelet count decreased [Fatal]

NARRATIVE: CASE EVENT DATE: 20160624
